FAERS Safety Report 19508341 (Version 1)
Quarter: 2021Q3

REPORT INFORMATION
  Report Type: Spontaneous
  Country: FR (occurrence: FR)
  Receive Date: 20210708
  Receipt Date: 20210708
  Transmission Date: 20211014
  Serious: Yes (Hospitalization)
  Sender: FDA-Public Use
  Company Number: FR-PFIZER INC-2021778441

PATIENT
  Age: 57 Year
  Sex: Female
  Weight: 76.5 kg

DRUGS (2)
  1. SOLU?MEDROL [Suspect]
     Active Substance: METHYLPREDNISOLONE SODIUM SUCCINATE
     Indication: ENCEPHALITIS
     Dosage: UNK
     Route: 042
     Dates: start: 20210519, end: 20210527
  2. VIALEBEX [Suspect]
     Active Substance: ALBUMIN HUMAN
     Indication: ENCEPHALITIS
     Dosage: UNK
     Route: 042
     Dates: start: 20210525, end: 20210527

REACTIONS (2)
  - Off label use [Unknown]
  - Pancytopenia [Recovering/Resolving]

NARRATIVE: CASE EVENT DATE: 20210526
